FAERS Safety Report 13399882 (Version 1)
Quarter: 2017Q2

REPORT INFORMATION
  Report Type: Spontaneous
  Country: US (occurrence: US)
  Receive Date: 20170404
  Receipt Date: 20170404
  Transmission Date: 20170830
  Serious: Yes (Hospitalization, Disabling, Other)
  Sender: FDA-Public Use
  Company Number: None

PATIENT
  Age: 54 Year
  Sex: Male
  Weight: 92.25 kg

DRUGS (9)
  1. RAMPRIL [Concomitant]
     Active Substance: RAMIPRIL
  2. BUSPIRON HCL [Concomitant]
  3. ATORVASTATIN [Concomitant]
     Active Substance: ATORVASTATIN
  4. ASPIRIN. [Concomitant]
     Active Substance: ASPIRIN
  5. FISH OIL [Concomitant]
     Active Substance: FISH OIL
  6. THERA-M CAPLET VITAMIN [Concomitant]
  7. HUMIRA [Suspect]
     Active Substance: ADALIMUMAB
     Indication: CROHN^S DISEASE
     Dosage: 2 INJECTION(S);BI-WEEKLY; SINGLE USE PREFILLED PEN IN THIGH?
     Dates: start: 20161111, end: 20161114
  8. PAROETINE HCL [Concomitant]
  9. GABAPENTIN. [Concomitant]
     Active Substance: GABAPENTIN

REACTIONS (4)
  - Paraesthesia [None]
  - Cardiac failure congestive [None]
  - Cerebrovascular accident [None]
  - Hypoaesthesia [None]

NARRATIVE: CASE EVENT DATE: 20170121
